FAERS Safety Report 6992258-X (Version None)
Quarter: 2010Q3

REPORT INFORMATION
  Report Type: 
  Country: None (occurrence: None)
  Receive Date: 20100916
  Receipt Date: 20100916
  Transmission Date: 20110219
  Serious: No
  Sender: FDA-Public Use
  Company Number: None

PATIENT
  Sex: Female

DRUGS (1)
  1. GEODON [Suspect]
     Indication: BIPOLAR I DISORDER
     Dosage: 2 ONCE A DAY PO
     Route: 048
     Dates: start: 20091101, end: 20100915

REACTIONS (2)
  - HOT FLUSH [None]
  - MIDDLE INSOMNIA [None]
